FAERS Safety Report 6603294-7 (Version None)
Quarter: 2010Q1

REPORT INFORMATION
  Report Type: 
  Country: None (occurrence: None)
  Receive Date: 20100226
  Receipt Date: 20090213
  Transmission Date: 20100710
  Serious: Yes (Hospitalization)
  Sender: FDA-Public Use
  Company Number: A0772373A

PATIENT
  Age: 88 Year
  Sex: Female

DRUGS (15)
  1. ALKERAN [Suspect]
     Indication: MULTIPLE MYELOMA
     Dosage: 14MG SINGLE DOSE
     Route: 048
     Dates: start: 20081124, end: 20081124
  2. THALIDOMIDE [Suspect]
     Indication: MULTIPLE MYELOMA
     Dosage: 100MG SINGLE DOSE
     Route: 048
     Dates: start: 20081124, end: 20081124
  3. PREDNISONE [Concomitant]
     Indication: MULTIPLE MYELOMA
     Route: 048
  4. ALPRAZOLAM [Concomitant]
     Dosage: 1MG AT NIGHT
     Route: 048
  5. ARICEPT [Concomitant]
     Dosage: 5MG PER DAY
     Route: 048
  6. CALCIUM [Concomitant]
     Route: 048
  7. DARVOCET [Concomitant]
     Dosage: 1TAB FOUR TIMES PER DAY
     Route: 048
  8. LOTREL [Concomitant]
     Route: 048
  9. NEXIUM [Concomitant]
     Dosage: 40MG TWICE PER DAY
     Route: 048
  10. OXYBUTYNIN [Concomitant]
     Dosage: 10MG AT NIGHT
     Route: 048
  11. VITAMIN D [Concomitant]
     Dosage: 1000U AT NIGHT
     Route: 048
  12. RHINOCORT [Concomitant]
     Route: 045
  13. MULTI-VITAMIN [Concomitant]
  14. TYLENOL-500 [Concomitant]
  15. ZOMETA [Concomitant]
     Indication: PROPHYLAXIS
     Dates: start: 20081105

REACTIONS (2)
  - NAUSEA [None]
  - VOMITING [None]
